FAERS Safety Report 4579822-2 (Version None)
Quarter: 2005Q1

REPORT INFORMATION
  Report Type: 
  Country: None (occurrence: None)
  Receive Date: 20050210
  Receipt Date: 20050128
  Transmission Date: 20050727
  Serious: Yes (Life-Threatening, Disabling)
  Sender: FDA-Public Use
  Company Number: 2005020963

PATIENT
  Age: 30 Year
  Sex: Female

DRUGS (5)
  1. SULFASALAZINE [Suspect]
     Indication: ARTHRALGIA
     Dosage: (1 IN 2 D ORAL)
     Route: 048
     Dates: start: 20041223, end: 20050103
  2. PIROXICAM [Concomitant]
  3. MARVELON (DESOGESTREL, ETHINYLESTRADIOL) [Concomitant]
  4. PENICILLIN [Concomitant]
  5. ACETAMINOPHEN [Concomitant]

REACTIONS (4)
  - DISSEMINATED INTRAVASCULAR COAGULATION [None]
  - HAEMOLYSIS [None]
  - HEPATITIS ACUTE [None]
  - RENAL FAILURE ACUTE [None]
